FAERS Safety Report 9055395 (Version 2)
Quarter: 2013Q1

REPORT INFORMATION
  Report Type: Spontaneous
  Country: GR (occurrence: GR)
  Receive Date: 20130209
  Receipt Date: 20130306
  Transmission Date: 20140127
  Serious: Yes (Hospitalization)
  Sender: FDA-Public Use
  Company Number: GR-AMGEN-GRCSP2013006374

PATIENT
  Age: 71 Year
  Sex: Female

DRUGS (4)
  1. PROLIA [Suspect]
     Indication: OSTEOPOROSIS
     Dosage: 60 MG, Q6MO
     Dates: start: 20130120
  2. DIURETICS [Concomitant]
  3. MEDROL                             /00049601/ [Concomitant]
     Dosage: 8 MG, QD
     Route: 048
     Dates: start: 20130110
  4. NATECAL D3 [Concomitant]
     Dosage: 1 G, QD
     Dates: start: 20130110

REACTIONS (2)
  - Hyponatraemia [Recovered/Resolved]
  - Vomiting [Unknown]
